FAERS Safety Report 15366174 (Version 1)
Quarter: 2018Q3

REPORT INFORMATION
  Report Type: Spontaneous
  Country: DK (occurrence: DK)
  Receive Date: 20180910
  Receipt Date: 20180910
  Transmission Date: 20181010
  Serious: Yes (Hospitalization)
  Sender: FDA-Public Use
  Company Number: DK-AMGEN-DNKSP2018123004

PATIENT
  Age: 69 Year
  Sex: Female

DRUGS (9)
  1. BENDROFLUMETHIAZIDE [Concomitant]
     Active Substance: BENDROFLUMETHIAZIDE
     Indication: DIURETIC THERAPY
     Dosage: 1 DF (STRENGTH: 2.5 + 573 MG), UNK
     Route: 048
     Dates: start: 20060322
  2. TRAMADOL. [Concomitant]
     Active Substance: TRAMADOL
     Indication: PAIN
     Dosage: 100 MG, AS NECESSARY (50 MG DOSE: 2 TABLETS WHEN NEEDED, MAXIMUM 4 TIMES PER DAY)
     Route: 048
     Dates: start: 20151123, end: 20180630
  3. CALCIUM CHLORIDE. [Concomitant]
     Active Substance: CALCIUM CHLORIDE
     Indication: DIURETIC THERAPY
     Dosage: 1 DF, UNK
     Route: 048
     Dates: start: 20060322
  4. XGEVA [Suspect]
     Active Substance: DENOSUMAB
     Indication: OSTEOPOROSIS
     Dosage: 120 MG, Q4WK
     Route: 058
     Dates: start: 20151230, end: 20180228
  5. LETROZOLE. [Concomitant]
     Active Substance: LETROZOLE
     Indication: BREAST CANCER
     Dosage: 2.5 MG, QD
     Route: 048
     Dates: start: 20151230
  6. OMEPRAZOLE. [Concomitant]
     Active Substance: OMEPRAZOLE
     Indication: GASTROOESOPHAGEAL REFLUX DISEASE
     Dosage: 40 MG, QD (40 MG DOSE: 1 TABLET WHEN NEEDED, MAXIMUM 1 TIME PER DAY; AS NECESSARY)
     Route: 048
     Dates: start: 20151102
  7. PARACETAMOL [Concomitant]
     Active Substance: ACETAMINOPHEN
     Indication: PAIN
     Dosage: 1000 MG, AS NECESSARY (500 MG DOSE: 2 TABLETS WHEN NEEDED, MAXIMUM 4 TIMES PER DAY)
     Route: 048
     Dates: start: 20151102
  8. AMLODIPINE [Concomitant]
     Active Substance: AMLODIPINE BESYLATE
     Indication: HYPERTENSION
     Dosage: 10 MG, QD
     Route: 048
     Dates: start: 20160127
  9. EZETIMIBE. [Concomitant]
     Active Substance: EZETIMIBE
     Indication: HYPERCHOLESTEROLAEMIA
     Dosage: 10 MG, QD
     Route: 048
     Dates: start: 20130523

REACTIONS (6)
  - Oral cavity fistula [Unknown]
  - Purulence [Unknown]
  - Gingival swelling [Unknown]
  - Impaired healing [Unknown]
  - Jaw operation [Recovered/Resolved]
  - Osteonecrosis of jaw [Recovered/Resolved]

NARRATIVE: CASE EVENT DATE: 20160930
